FAERS Safety Report 4373714-X (Version None)
Quarter: 2004Q1

REPORT INFORMATION
  Report Type: 
  Country: None (occurrence: None)
  Receive Date: 20040305
  Receipt Date: 20040105
  Transmission Date: 20041129
  Serious: Yes (Other)
  Sender: FDA-Public Use
  Company Number: 2004UW00065

PATIENT
  Sex: Female

DRUGS (3)
  1. CRESTOR [Suspect]
     Dosage: 10 MG DAILY PO
     Route: 048
  2. NORVASC [Concomitant]
  3. PLAVIX [Concomitant]

REACTIONS (3)
  - ASTHENIA [None]
  - DIARRHOEA [None]
  - DIFFICULTY IN WALKING [None]
